FAERS Safety Report 10315603 (Version 2)
Quarter: 2015Q1

REPORT INFORMATION
  Report Type: Other
  Country: US (occurrence: US)
  Receive Date: 20140719
  Receipt Date: 20150217
  Transmission Date: 20150720
  Serious: Yes (Death, Hospitalization, Other)
  Sender: FDA-Public Use
  Company Number: US-GSKPPD-2014GSK012431

PATIENT
  Age: 43 Year
  Sex: Male

DRUGS (5)
  1. AVANDIA [Suspect]
     Active Substance: ROSIGLITAZONE MALEATE
     Indication: DIABETES MELLITUS
     Dosage: AVANDIA WAS NOT LISTED AMONG THE PATIENTS RECORDS REVIEWED.
     Route: 048
  2. METOPROLOL [Concomitant]
     Active Substance: METOPROLOL
  3. CLONIDINE. [Concomitant]
     Active Substance: CLONIDINE
     Route: 048
  4. NITROGLYCERIN. [Concomitant]
     Active Substance: NITROGLYCERIN
     Dosage: 1 OF 150TH
  5. LASIX [Concomitant]
     Active Substance: FUROSEMIDE

REACTIONS (3)
  - Cardiac failure congestive [Unknown]
  - Hypertensive heart disease [Fatal]
  - Accelerated hypertension [Recovered/Resolved]

NARRATIVE: CASE EVENT DATE: 20070426
